FAERS Safety Report 25440454 (Version 1)
Quarter: 2025Q2

REPORT INFORMATION
  Report Type: Report from Study
  Country: PK (occurrence: PK)
  Receive Date: 20250616
  Receipt Date: 20250616
  Transmission Date: 20250716
  Serious: Yes (Other)
  Sender: NOVARTIS
  Company Number: PK-002147023-NVSC2025PK095224

PATIENT
  Age: 55 Year
  Sex: Female

DRUGS (1)
  1. KISQALI [Suspect]
     Active Substance: RIBOCICLIB SUCCINATE
     Indication: Breast cancer
     Route: 048
     Dates: start: 2021

REACTIONS (2)
  - Ill-defined disorder [Not Recovered/Not Resolved]
  - Drug intolerance [Not Recovered/Not Resolved]
